FAERS Safety Report 5205452-5 (Version None)
Quarter: 2006Q4

REPORT INFORMATION
  Report Type: 
  Country: None (occurrence: None)
  Receive Date: 20061027
  Receipt Date: 20060221
  Transmission Date: 20070319
  Serious: Yes (Hospitalization, Other)
  Sender: FDA-Public Use
  Company Number: HQWYE165917MAR05

PATIENT
  Age: 68 Year
  Sex: Female
  Weight: 81.72 kg

DRUGS (1)
  1. PREMARIN [Suspect]
     Indication: OESTROGEN REPLACEMENT THERAPY
     Dates: start: 19790101, end: 20000101

REACTIONS (1)
  - BREAST CANCER [None]
